FAERS Safety Report 15896942 (Version 1)
Quarter: 2019Q1

REPORT INFORMATION
  Report Type: Report from Study
  Country: US (occurrence: US)
  Receive Date: 20190131
  Receipt Date: 20190131
  Transmission Date: 20190417
  Serious: Yes (Other)
  Sender: FDA-Public Use
  Company Number: US-GILEAD-2019-0387748

PATIENT
  Age: 76 Year
  Sex: Male

DRUGS (2)
  1. IDELALISIB [Suspect]
     Active Substance: IDELALISIB
     Indication: CHRONIC LYMPHOCYTIC LEUKAEMIA
     Dosage: 150 MG, BID
     Route: 048
     Dates: start: 20110103
  2. NITRO [NITROFURANTOIN] [Concomitant]
     Indication: CHEST PAIN
     Dosage: AS NEEDED TO RELIEVE CHEST PAIN

REACTIONS (2)
  - Chest pain [Recovering/Resolving]
  - Arterial occlusive disease [Recovered/Resolved]

NARRATIVE: CASE EVENT DATE: 201811
